FAERS Safety Report 7049202-9 (Version None)
Quarter: 2010Q4

REPORT INFORMATION
  Report Type: 
  Country: None (occurrence: None)
  Receive Date: 20101018
  Receipt Date: 20101006
  Transmission Date: 20110411
  Serious: Yes (Life-Threatening, Hospitalization, Disabling)
  Sender: FDA-Public Use
  Company Number: CH-SANOFI-AVENTIS-2010SA060408

PATIENT
  Age: 58 Year
  Sex: Female

DRUGS (8)
  1. RIFINAH [Suspect]
     Route: 048
     Dates: start: 20100906, end: 20100914
  2. TRIATEC [Interacting]
     Indication: ESSENTIAL HYPERTENSION
     Route: 048
     Dates: end: 20100914
  3. MYAMBUTOL [Interacting]
     Route: 048
     Dates: start: 20100906, end: 20100914
  4. PYRAZINAMID ^SAD^ [Interacting]
     Route: 048
     Dates: start: 20100906, end: 20100914
  5. PLENDIL [Concomitant]
     Route: 048
     Dates: end: 20100914
  6. ASPIRIN [Concomitant]
     Route: 048
     Dates: end: 20100914
  7. TORASEMIDE [Concomitant]
     Route: 048
     Dates: end: 20100914
  8. CALCITRIOL [Concomitant]
     Route: 048
     Dates: end: 20100914

REACTIONS (6)
  - ABDOMINAL PAIN UPPER [None]
  - ACUTE HEPATIC FAILURE [None]
  - FATIGUE [None]
  - INTERNATIONAL NORMALISED RATIO INCREASED [None]
  - STUPOR [None]
  - VOMITING [None]
